FAERS Safety Report 9470931 (Version 1)
Quarter: 2013Q3

REPORT INFORMATION
  Report Type: Spontaneous
  Country: US (occurrence: US)
  Receive Date: 20130822
  Receipt Date: 20130822
  Transmission Date: 20140515
  Serious: Yes (Other)
  Sender: FDA-Public Use
  Company Number: US-BAYER-2013-098403

PATIENT
  Age: 21 Year
  Sex: Female

DRUGS (2)
  1. BEYAZ [Suspect]
     Route: 048
  2. ETONOGESTREL [Suspect]

REACTIONS (3)
  - Transient ischaemic attack [None]
  - Visual impairment [None]
  - Medication error [None]
